FAERS Safety Report 14641268 (Version 1)
Quarter: 2018Q1

REPORT INFORMATION
  Report Type: Spontaneous
  Country: None (occurrence: US)
  Receive Date: 20180315
  Receipt Date: 20180315
  Transmission Date: 20180509
  Serious: No
  Sender: FDA-Public Use
  Company Number: US-MISSION PHARMACAL COMPANY-2043822

PATIENT
  Age: 27 Year
  Sex: Female

DRUGS (1)
  1. THIOLA [Suspect]
     Active Substance: TIOPRONIN
     Indication: CYSTINURIA
     Route: 065
     Dates: start: 20170618

REACTIONS (1)
  - Drug ineffective [Unknown]
